FAERS Safety Report 22294044 (Version 1)
Quarter: 2023Q2

REPORT INFORMATION
  Report Type: Spontaneous
  Country: NL (occurrence: NL)
  Receive Date: 20230508
  Receipt Date: 20230508
  Transmission Date: 20230721
  Serious: Yes (Hospitalization, Other)
  Sender: FDA-Public Use
  Company Number: None

PATIENT
  Sex: Female
  Weight: 58 kg

DRUGS (1)
  1. HYDROCHLOROTHIAZIDE [Suspect]
     Active Substance: HYDROCHLOROTHIAZIDE
     Indication: Oedema
     Dosage: 25 MILLIGRAM DAILY; 1DD1T, HYDROCHLOORTHIAZIDE TABLET 25MG / BRAND NAME NOT SPECIFIED,
     Route: 065
     Dates: start: 20230329

REACTIONS (2)
  - Orthostatic hypertension [Not Recovered/Not Resolved]
  - Circulatory collapse [Unknown]
